FAERS Safety Report 7529173-9 (Version None)
Quarter: 2011Q2

REPORT INFORMATION
  Report Type: 
  Country: None (occurrence: None)
  Receive Date: 20110607
  Receipt Date: 20050204
  Transmission Date: 20111010
  Serious: Yes (Hospitalization)
  Sender: FDA-Public Use
  Company Number: PHHO2005CA01685

PATIENT
  Sex: Male

DRUGS (3)
  1. ALPRAZOLAM [Concomitant]
  2. RISPERIDONE [Concomitant]
  3. CLOZARIL [Suspect]
     Indication: SCHIZOAFFECTIVE DISORDER
     Dosage: 300 MG / DAY
     Route: 048
     Dates: start: 20040420

REACTIONS (2)
  - PROSTATITIS [None]
  - POSTOPERATIVE WOUND INFECTION [None]
